FAERS Safety Report 9096818 (Version 1)
Quarter: 2013Q1

REPORT INFORMATION
  Report Type: Spontaneous
  Country: US (occurrence: None)
  Receive Date: 20130125
  Receipt Date: 20130125
  Transmission Date: 20140127
  Serious: Yes (Other)
  Sender: FDA-Public Use
  Company Number: 2012-19979

PATIENT
  Age: 45 Year
  Sex: Male

DRUGS (2)
  1. MORPHINE SULFATE [Suspect]
     Indication: PRODUCT USED FOR UNKNOWN INDICATION
     Dosage: 1-2 MG/DAY, 12 MG/DAY, PEAK DOSE 32 MG/DAY, INTRATHECAL
     Route: 037
  2. CLONIDINE (CLONIDINE) [Concomitant]

REACTIONS (5)
  - Infusion site granuloma [None]
  - Spinal cord compression [None]
  - Staphylococcal infection [None]
  - Pain in extremity [None]
  - Spinal cord oedema [None]
